FAERS Safety Report 7394311-8 (Version None)
Quarter: 2011Q2

REPORT INFORMATION
  Report Type: 
  Country: None (occurrence: None)
  Receive Date: 20110405
  Receipt Date: 20110328
  Transmission Date: 20111010
  Serious: Yes (Hospitalization)
  Sender: FDA-Public Use
  Company Number: US-JNJFOC-20110311795

PATIENT
  Age: 69 Year
  Sex: Female
  Weight: 57 kg

DRUGS (15)
  1. NORVASC [Concomitant]
     Indication: HYPERTENSION
     Route: 065
  2. FENTANYL [Concomitant]
     Route: 065
  3. PROPOFOL [Concomitant]
     Route: 065
  4. TRAMADOL [Concomitant]
     Route: 065
  5. BEVACIZUMAB [Suspect]
     Indication: BREAST CANCER METASTATIC
     Dosage: ONCE EVERY OTHER WEEK
     Route: 042
  6. CEFAZOLIN [Concomitant]
     Route: 065
  7. LACTATED RINGER'S [Concomitant]
     Route: 065
  8. ALEVE [Concomitant]
     Route: 065
  9. ADVIL LIQUI-GELS [Concomitant]
     Route: 065
  10. METOPROLOL [Concomitant]
     Route: 065
  11. MIDAZOLAM HYDROCHLORIDE [Concomitant]
     Route: 065
  12. AMLODIPINE BESYLATE [Concomitant]
     Route: 065
  13. LEVAQUIN [Suspect]
     Indication: PNEUMONIA
     Route: 048
  14. PACLITAXEL [Suspect]
     Indication: BREAST CANCER METASTATIC
     Dosage: WEEKLY ON 3 WEEKS OFF 1 WEEK
     Route: 042
  15. DEXAMETHASONE [Concomitant]
     Route: 065

REACTIONS (2)
  - SEPSIS [None]
  - MENISCUS LESION [None]
